FAERS Safety Report 8791157 (Version 1)
Quarter: 2012Q4

REPORT INFORMATION
  Report Type: Spontaneous
  Country: US (occurrence: None)
  Receive Date: 20120913
  Receipt Date: 20120913
  Transmission Date: 20130627
  Serious: Yes (Other)
  Sender: FDA-Public Use
  Company Number: None

PATIENT
  Age: 64 Year
  Sex: Male
  Weight: 78.47 kg

DRUGS (1)
  1. FML FORTE [Suspect]
     Indication: EYES TEARING
     Dosage: 1 Drop Eacy Eye   4X Daily
     Dates: start: 20120814, end: 20120824

REACTIONS (4)
  - Upper-airway cough syndrome [None]
  - Sinus headache [None]
  - Throat irritation [None]
  - Nasal discomfort [None]
